FAERS Safety Report 13630226 (Version 3)
Quarter: 2017Q3

REPORT INFORMATION
  Report Type: Spontaneous
  Country: GB (occurrence: GB)
  Receive Date: 20170608
  Receipt Date: 20170830
  Transmission Date: 20171127
  Serious: Yes (Hospitalization, Other)
  Sender: FDA-Public Use
  Company Number: PHFR2017GB004057

PATIENT
  Age: 67 Year
  Sex: Male

DRUGS (5)
  1. ZYKADIA [Suspect]
     Active Substance: CERITINIB
     Dosage: 450 MG, UNK
     Route: 065
     Dates: start: 201702
  2. LORLATINIB [Suspect]
     Active Substance: LORLATINIB
     Indication: LUNG NEOPLASM MALIGNANT
     Route: 065
  3. ZYKADIA [Suspect]
     Active Substance: CERITINIB
     Indication: LUNG NEOPLASM MALIGNANT
     Dosage: UNK
     Route: 065
  4. ZYKADIA [Suspect]
     Active Substance: CERITINIB
     Dosage: 600 MG, UNK
     Route: 065
     Dates: start: 201611
  5. CRIZOTINIB [Suspect]
     Active Substance: CRIZOTINIB
     Indication: LUNG NEOPLASM MALIGNANT
     Route: 065

REACTIONS (5)
  - Malignant neoplasm progression [Unknown]
  - Ascites [Unknown]
  - Lung neoplasm malignant [Unknown]
  - Renal impairment [Unknown]
  - Acute kidney injury [Recovering/Resolving]

NARRATIVE: CASE EVENT DATE: 201701
